FAERS Safety Report 22371402 (Version 1)
Quarter: 2023Q2

REPORT INFORMATION
  Report Type: Spontaneous
  Country: DE (occurrence: DE)
  Receive Date: 20230526
  Receipt Date: 20230526
  Transmission Date: 20230722
  Serious: Yes (Hospitalization, Other)
  Sender: FDA-Public Use
  Company Number: DE-ELI_LILLY_AND_COMPANY-DE202303012992

PATIENT
  Age: 61 Year
  Sex: Female

DRUGS (2)
  1. METHOTREXATE [Suspect]
     Active Substance: METHOTREXATE
     Indication: Product used for unknown indication
     Dosage: 12.5 MG, QW (12.5 MG, WEEKLY (1/W))
     Route: 065
  2. BARICITINIB [Suspect]
     Active Substance: BARICITINIB
     Indication: Rheumatoid arthritis
     Dosage: 4 MG, QD (4 MG, DAILY)
     Route: 048
     Dates: start: 201712, end: 20230323

REACTIONS (4)
  - Plasmacytoma [Unknown]
  - Spinal fracture [Unknown]
  - Pericardial effusion [Unknown]
  - Hyperkalaemia [Unknown]
